FAERS Safety Report 6442394-1 (Version None)
Quarter: 2009Q4

REPORT INFORMATION
  Report Type: 
  Country: None (occurrence: None)
  Receive Date: 20091112
  Receipt Date: 20091028
  Transmission Date: 20100525
  Serious: Yes (Other)
  Sender: FDA-Public Use
  Company Number: 2009SP002937

PATIENT
  Age: 90 Year
  Sex: Female

DRUGS (4)
  1. ALVESCO [Suspect]
     Dosage: 160 UG; INHALATION
  2. PULMICORT [Concomitant]
  3. SEREVENT [Concomitant]
  4. PRE MEDS [Concomitant]

REACTIONS (3)
  - DYSPNOEA [None]
  - GLOSSODYNIA [None]
  - SWOLLEN TONGUE [None]
